FAERS Safety Report 4403271-0 (Version None)
Quarter: 2004Q3

REPORT INFORMATION
  Report Type: 
  Country: None (occurrence: None)
  Receive Date: 20040721
  Receipt Date: 20040405
  Transmission Date: 20050211
  Serious: No
  Sender: FDA-Public Use
  Company Number: US-GLAXOSMITHKLINE-A0506108A

PATIENT
  Sex: Female

DRUGS (6)
  1. IMITREX [Suspect]
     Indication: MIGRAINE
     Route: 048
  2. DARVOCET-N 100 [Concomitant]
  3. VALIUM [Concomitant]
  4. CARDIZEM CD [Concomitant]
  5. BOTOX [Concomitant]
     Indication: DYSTONIA
  6. ESTRACE [Concomitant]

REACTIONS (2)
  - DRUG INEFFECTIVE [None]
  - HEADACHE [None]
